FAERS Safety Report 18024830 (Version 1)
Quarter: 2020Q3

REPORT INFORMATION
  Report Type: Spontaneous
  Country: US (occurrence: US)
  Receive Date: 20200714
  Receipt Date: 20200714
  Transmission Date: 20201103
  Serious: Yes (Hospitalization)
  Sender: FDA-Public Use
  Company Number: None

PATIENT
  Age: 71 Year
  Sex: Male
  Weight: 90.72 kg

DRUGS (1)
  1. GLIPIZIDE (GLIPIZIDE 10MG TAB) [Suspect]
     Active Substance: GLIPIZIDE
     Indication: DIABETES MELLITUS
     Route: 048
     Dates: start: 20170421, end: 20191117

REACTIONS (11)
  - Pyrexia [None]
  - Acute kidney injury [None]
  - Decreased appetite [None]
  - Vomiting [None]
  - Diarrhoea [None]
  - Oropharyngeal pain [None]
  - Cough [None]
  - Chest pain [None]
  - Hypoglycaemia [None]
  - Nausea [None]
  - Unresponsive to stimuli [None]

NARRATIVE: CASE EVENT DATE: 20191117
